FAERS Safety Report 22912694 (Version 2)
Quarter: 2024Q2

REPORT INFORMATION
  Report Type: Spontaneous
  Country: IN (occurrence: IN)
  Receive Date: 20230906
  Receipt Date: 20240411
  Transmission Date: 20240715
  Serious: Yes (Other)
  Sender: FDA-Public Use
  Company Number: IN-PFIZER INC-2021685580

PATIENT
  Age: 62 Year
  Sex: Female

DRUGS (4)
  1. AROMASIN [Suspect]
     Active Substance: EXEMESTANE
     Indication: Breast cancer metastatic
     Dosage: 25 MG, 1X/DAY
     Route: 048
     Dates: start: 20210420
  2. CALCIUM CARBONATE\CHOLECALCIFEROL [Concomitant]
     Active Substance: CALCIUM CARBONATE\CHOLECALCIFEROL
     Dosage: 500 MG
  3. ESENTRA [DENOSUMAB] [Concomitant]
     Dosage: 60 MG
     Route: 058
  4. GABAPENTIN [Concomitant]
     Active Substance: GABAPENTIN
     Dosage: 100 MG HS

REACTIONS (4)
  - Hypothyroidism [Unknown]
  - Hypertension [Not Recovered/Not Resolved]
  - Body mass index increased [Unknown]
  - Mean arterial pressure increased [Unknown]

NARRATIVE: CASE EVENT DATE: 20230811
